FAERS Safety Report 4808470-1 (Version None)
Quarter: 2005Q4

REPORT INFORMATION
  Report Type: 
  Country: None (occurrence: None)
  Receive Date: 20051025
  Receipt Date: 20051014
  Transmission Date: 20060501
  Serious: Yes (Death)
  Sender: FDA-Public Use
  Company Number: FR-BRISTOL-MYERS SQUIBB COMPANY-13144498

PATIENT
  Age: 57 Year
  Sex: Male
  Weight: 90 kg

DRUGS (6)
  1. ABILIFY [Suspect]
     Route: 048
     Dates: start: 20050201, end: 20050220
  2. ABILIFY [Suspect]
     Route: 048
     Dates: start: 20050221, end: 20050813
  3. ABILIFY [Suspect]
     Route: 048
     Dates: start: 20050814, end: 20050913
  4. STILNOX [Suspect]
  5. ATARAX [Concomitant]
  6. TAREG [Concomitant]

REACTIONS (1)
  - COMPLETED SUICIDE [None]
